FAERS Safety Report 4366991-2 (Version None)
Quarter: 2004Q2

REPORT INFORMATION
  Report Type: 
  Country: None (occurrence: None)
  Receive Date: 20040527
  Receipt Date: 20040527
  Transmission Date: 20050107
  Serious: Yes (Other)
  Sender: FDA-Public Use
  Company Number: None

PATIENT
  Age: 62 Year
  Sex: Male

DRUGS (1)
  1. ISOVUE-370 [Suspect]
     Dosage: INTRAVENOUS
     Route: 042

REACTIONS (1)
  - URTICARIA [None]
